FAERS Safety Report 5126286-6 (Version None)
Quarter: 2006Q4

REPORT INFORMATION
  Report Type: 
  Country: None (occurrence: None)
  Receive Date: 20061012
  Receipt Date: 20060926
  Transmission Date: 20070319
  Serious: Yes (Hospitalization)
  Sender: FDA-Public Use
  Company Number: AT-MERCK-0609AUT00025

PATIENT
  Age: 84 Year
  Sex: Female

DRUGS (14)
  1. FOSAMAX [Suspect]
     Indication: OSTEOPOROSIS
     Route: 048
     Dates: start: 20060923, end: 20060923
  2. BUDESONIDE AND FORMOTEROL FUMARATE [Interacting]
     Indication: ASTHMA
     Route: 048
  3. TIOTROPIUM BROMIDE [Concomitant]
     Indication: ASTHMA
     Route: 048
  4. LISINOPRIL [Concomitant]
     Indication: HYPERTENSION
     Route: 048
  5. HYDROCHLOROTHIAZIDE AND LISINOPRIL [Concomitant]
     Indication: HYPERTENSION
     Route: 048
  6. FENOTEROL HYDROBROMIDE AND IPRATROPIUM BROMIDE [Concomitant]
     Indication: ASTHMA
     Route: 048
  7. NITROGLYCERIN [Concomitant]
     Indication: CORONARY ARTERY DISEASE
     Route: 061
  8. CALCIUM CARBONATE AND CHOLECALCIFEROL [Concomitant]
     Indication: OSTEOPOROSIS
     Route: 048
  9. ASPIRIN [Concomitant]
     Indication: CORONARY ARTERY DISEASE
     Route: 048
  10. MAGNESIUM (UNSPECIFIED) [Concomitant]
     Indication: MUSCLE SPASMS
     Route: 048
  11. NITRAZEPAM [Concomitant]
     Indication: SLEEP DISORDER
     Route: 048
  12. ERGOLOID MESYLATES [Concomitant]
     Indication: CARDIOVASCULAR DISORDER
     Route: 048
  13. VITAMIN D (UNSPECIFIED) [Concomitant]
     Indication: SECONDARY HYPERTHYROIDISM
     Route: 048
  14. NIFEDIPINE HCL [Concomitant]
     Indication: HYPERTENSION
     Route: 048

REACTIONS (5)
  - ASTHMA [None]
  - CIRCULATORY COLLAPSE [None]
  - DRUG INTERACTION [None]
  - PRURITUS [None]
  - RASH [None]
